FAERS Safety Report 6158910-3 (Version None)
Quarter: 2009Q2

REPORT INFORMATION
  Report Type: 
  Country: None (occurrence: None)
  Receive Date: 20090415
  Receipt Date: 20090406
  Transmission Date: 20091009
  Serious: Yes (Other)
  Sender: FDA-Public Use
  Company Number: US025016

PATIENT
  Age: 45 Year
  Sex: Female
  Weight: 102.0593 kg

DRUGS (6)
  1. PROVIGIL [Suspect]
     Indication: NARCOLEPSY
     Dosage: 400 MG (400 MG, 1 IN1 D), ORAL
     Route: 048
     Dates: start: 20070501
  2. PROVIGIL [Suspect]
     Indication: SLEEP APNOEA SYNDROME
     Dosage: 400 MG (400 MG, 1 IN1 D), ORAL
     Route: 048
     Dates: start: 20070501
  3. NEXIUM (ESOMEPRAZOLE MAGNESIUM) (CAPSULES) [Concomitant]
  4. CLONAZEPAM (CLONAZEPAM) (1 MILLIGRAM, TABLETS) [Concomitant]
  5. CYMBALTA [Concomitant]
  6. AMBIEN [Concomitant]

REACTIONS (6)
  - ASTHMA [None]
  - DRY SKIN [None]
  - PRURITUS [None]
  - RASH ERYTHEMATOUS [None]
  - SALIVARY HYPERSECRETION [None]
  - TONGUE ULCERATION [None]
